FAERS Safety Report 9409734 (Version 1)
Quarter: 2013Q2

REPORT INFORMATION
  Report Type: Spontaneous
  Country: US (occurrence: None)
  Receive Date: 20130415
  Receipt Date: 20130415
  Transmission Date: 20140414
  Serious: Yes (Disabling)
  Sender: FDA-Public Use
  Company Number: 1304-453

PATIENT
  Age: 76 Year
  Sex: Male
  Weight: 92.08 kg

DRUGS (22)
  1. EYLEA (AFLIBERCEPT) (INJECTION) (AFLIBERCEPT) [Suspect]
     Indication: AGE-RELATED MACULAR DEGENERATION
     Route: 031
  2. ALEVE (NAPROXEN SODIUM) [Concomitant]
  3. VITATMIN D (ERGOCALCIFEROL) [Concomitant]
  4. LOVASTATIN (LOVASTATIN) [Concomitant]
  5. LORAZEPAM (LORAZEPAM) [Concomitant]
  6. BENAZEPRIL (BENAZEPRIL) [Concomitant]
  7. K-DUR (POTASSIUM CHORIDE) [Concomitant]
  8. PROVENTIL (SALBUTAMOL) [Concomitant]
  9. PROSCAR [Concomitant]
  10. TENORMIN (ATENOLOL) [Concomitant]
  11. CARDURA (DOXAZOSIN MESILATE) [Concomitant]
  12. AMLODIPINE (AMLODIPINE) [Concomitant]
  13. COLESTID (COLESTIPOL HYDROCHLORIDE) [Concomitant]
  14. OMEPRAZOLE (OMEPRAZOLE) [Concomitant]
  15. LEXAPRO (ESCITALOPRAM OXALATE) [Concomitant]
  16. ZOFRAN (ONDANSETRON) [Concomitant]
  17. PROMETHAZINE (PROMETHAZINE) [Concomitant]
  18. DOCUSATE SODIUM (DOCUSATE SODIUM) [Concomitant]
  19. ASPIRIN (ACETYLSALICYLIC ACID) [Concomitant]
  20. GLUCOSAMINE CHONDROITIN COMPLEX (GLUCOSAMINE CHONDROITIN COMPLEX /06278301/ [Concomitant]
  21. PRESERVISION LUTEIN (PRESERVISION LUTEIN) [Concomitant]
  22. NIZORAL 2% (KETOCONAZOLE) [Concomitant]

REACTIONS (2)
  - Non-infectious endophthalmitis [None]
  - Blindness [None]
